FAERS Safety Report 4515838-X (Version None)
Quarter: 2004Q4

REPORT INFORMATION
  Report Type: 
  Country: None (occurrence: None)
  Receive Date: 20041001
  Receipt Date: 20031008
  Transmission Date: 20050328
  Serious: Yes (Life-Threatening, Hospitalization)
  Sender: FDA-Public Use
  Company Number: TPA2003A01396

PATIENT
  Age: 47 Year
  Sex: Female
  Weight: 90.7194 kg

DRUGS (16)
  1. ACTOS [Suspect]
     Indication: DIABETES MELLITUS NON-INSULIN-DEPENDENT
     Dosage: 30 MG, 1 IN 1 D, PER ORAL
     Route: 048
     Dates: start: 20020501, end: 20030801
  2. LANTUS [Concomitant]
  3. CENESTIN (ESTROGENS CONJUGATED) [Concomitant]
  4. SKELAXIN [Concomitant]
  5. CARDIZEM [Concomitant]
  6. ALTACE [Concomitant]
  7. ATENOLOL [Concomitant]
  8. HYDROCHLOROTHIAZIDE [Concomitant]
  9. KLOR-CON [Concomitant]
  10. PRAVACHOL [Concomitant]
  11. METFORMIN HCL [Concomitant]
  12. AMARYL [Concomitant]
  13. PREVACID [Concomitant]
  14. HYDROXYCHLOROQUINE SULFATE [Concomitant]
  15. ALPRAZOLAM [Concomitant]
  16. LASIX [Concomitant]

REACTIONS (3)
  - DYSPNOEA [None]
  - OEDEMA [None]
  - WEIGHT INCREASED [None]
